FAERS Safety Report 17716127 (Version 2)
Quarter: 2020Q2

REPORT INFORMATION
  Report Type: Report from Study
  Country: DE (occurrence: DE)
  Receive Date: 20200428
  Receipt Date: 20200504
  Transmission Date: 20200714
  Serious: Yes (Hospitalization, Other)
  Sender: FDA-Public Use
  Company Number: DE-BRISTOL-MYERS SQUIBB COMPANY-BMS-2020-033174

PATIENT
  Age: 69 Year
  Sex: Male

DRUGS (3)
  1. NIVOLUMAB [Suspect]
     Active Substance: NIVOLUMAB
     Indication: TRANSITIONAL CELL CARCINOMA
     Dosage: 240 MILLIGRAM, 3,5 WEEKS, 9 ADMINISTRATIONS
     Route: 065
     Dates: start: 20191119
  2. IPILIMUMAB [Suspect]
     Active Substance: IPILIMUMAB
     Indication: TRANSITIONAL CELL CARCINOMA
     Dosage: 243 MILLIGRAM, 3, 5 WEEKS, 4 ADMINISTRATIONS
     Route: 065
     Dates: start: 20200114
  3. CEFPODOXIME [Concomitant]
     Active Substance: CEFPODOXIME
     Indication: URINARY TRACT INFECTION
     Dosage: 200 MILLIGRAM, BID
     Route: 065
     Dates: start: 20200415, end: 20200421

REACTIONS (2)
  - Acute kidney injury [Recovered/Resolved]
  - Dehydration [Recovered/Resolved]

NARRATIVE: CASE EVENT DATE: 20200421
